FAERS Safety Report 22160379 (Version 2)
Quarter: 2023Q2

REPORT INFORMATION
  Report Type: Spontaneous
  Country: US (occurrence: US)
  Receive Date: 20230331
  Receipt Date: 20230502
  Transmission Date: 20230722
  Serious: No
  Sender: FDA-Public Use
  Company Number: US-ALXN-A202303983

PATIENT
  Age: 46 Year
  Sex: Female
  Weight: 87.7 kg

DRUGS (3)
  1. ULTOMIRIS [Suspect]
     Active Substance: RAVULIZUMAB-CWVZ
     Indication: Myasthenia gravis
     Dosage: 3300 MG, UNK
     Route: 042
  2. DELTASONE                          /00016001/ [Concomitant]
     Indication: Product used for unknown indication
     Dosage: 20 MG, QD
     Route: 065
  3. MESTINON [Concomitant]
     Active Substance: PYRIDOSTIGMINE BROMIDE
     Indication: Product used for unknown indication
     Dosage: 60 MG, TID
     Route: 065

REACTIONS (2)
  - Headache [Recovered/Resolved]
  - Pyrexia [Recovered/Resolved]
